FAERS Safety Report 15355569 (Version 2)
Quarter: 2018Q3

REPORT INFORMATION
  Report Type: Report from Study
  Country: US (occurrence: US)
  Receive Date: 20180906
  Receipt Date: 20180906
  Transmission Date: 20181010
  Serious: Yes (Hospitalization)
  Sender: FDA-Public Use
  Company Number: US-EISAI MEDICAL RESEARCH-EC-2018-044091

PATIENT
  Age: 57 Year
  Sex: Female
  Weight: 54 kg

DRUGS (22)
  1. DEXAMETHASONE. [Concomitant]
     Active Substance: DEXAMETHASONE
  2. ASTRAGALAS ROOT [Concomitant]
  3. FERROUS SULFATE. [Concomitant]
     Active Substance: FERROUS SULFATE
  4. CURCUMIN [Concomitant]
     Active Substance: CURCUMIN
  5. CLINDAMYCIN. [Concomitant]
     Active Substance: CLINDAMYCIN
  6. LEVETIRACETAM. [Concomitant]
     Active Substance: LEVETIRACETAM
  7. LEVOFLOXACIN. [Concomitant]
     Active Substance: LEVOFLOXACIN
  8. METRONIDAZOLE. [Concomitant]
     Active Substance: METRONIDAZOLE
  9. VITAMIN B COMPLEX [Concomitant]
     Active Substance: CYANOCOBALAMIN\DEXPANTHENOL\NIACINAMIDE\PYRIDOXINE HYDROCHLORIDE\RIBOFLAVIN 5^-PHOSPHATE SODIUM\THIAMINE HYDROCHLORIDE\VITAMIN B COMPLEX
  10. LENVIMA [Suspect]
     Active Substance: LENVATINIB
     Indication: ENDOMETRIAL CANCER
     Route: 048
     Dates: start: 20180817, end: 20180826
  11. ADVIL [Concomitant]
     Active Substance: IBUPROFEN
  12. MIRALAX [Concomitant]
     Active Substance: POLYETHYLENE GLYCOL 3350
  13. VITAMIN D3 [Concomitant]
     Active Substance: CHOLECALCIFEROL
  14. KEYTRUDA [Concomitant]
     Active Substance: PEMBROLIZUMAB
  15. GABAPENTIN. [Concomitant]
     Active Substance: GABAPENTIN
  16. VITAMIN K2 [Concomitant]
     Active Substance: MENAQUINONE 6
  17. BLACK COHOSH [Concomitant]
     Active Substance: BLACK COHOSH
  18. PROBIOTICS [Concomitant]
     Active Substance: PROBIOTICS NOS
  19. FENTANYL. [Concomitant]
     Active Substance: FENTANYL
  20. MORPHINE [Concomitant]
     Active Substance: MORPHINE
  21. LETROZOLE. [Concomitant]
     Active Substance: LETROZOLE
  22. DULCOLAX NOS [Concomitant]
     Active Substance: BISACODYL OR DOCUSATE SODIUM

REACTIONS (7)
  - Off label use [Unknown]
  - Cerebral haemorrhage [Unknown]
  - Somnolence [Unknown]
  - Fatigue [Unknown]
  - Blindness [Unknown]
  - Aphasia [Unknown]
  - Diarrhoea [Unknown]

NARRATIVE: CASE EVENT DATE: 201808
